FAERS Safety Report 6204732-4 (Version None)
Quarter: 2009Q2

REPORT INFORMATION
  Report Type: 
  Country: None (occurrence: None)
  Receive Date: 20090527
  Receipt Date: 20090520
  Transmission Date: 20091009
  Serious: Yes (Death)
  Sender: FDA-Public Use
  Company Number: AU-PFIZER INC-2009218301

PATIENT
  Age: 66 Year

DRUGS (7)
  1. TAMOXIFEN CITRATE [Suspect]
     Indication: BREAST CANCER
     Dosage: UNK
     Route: 048
     Dates: start: 19980402, end: 20010626
  2. DOXORUBICIN HCL [Suspect]
     Indication: BREAST CANCER
     Dosage: X4
     Route: 042
     Dates: start: 19970724, end: 19970925
  3. CYCLOPHOSPHAMIDE [Suspect]
     Indication: BREAST CANCER
     Dosage: X4
     Route: 042
     Dates: start: 19970724, end: 19970925
  4. CYCLOPHOSPHAMIDE [Suspect]
     Dosage: X3
     Route: 042
     Dates: start: 19980115, end: 19980226
  5. METHOTREXATE SODIUM [Suspect]
     Indication: BREAST CANCER
     Dosage: X3
     Route: 042
     Dates: start: 19980115, end: 19980226
  6. FLUOROURACIL [Suspect]
     Indication: BREAST CANCER
     Dosage: X3
     Route: 042
     Dates: start: 19980115, end: 19980226
  7. LETROZOLE [Concomitant]
     Dosage: UNK
     Dates: start: 20010626

REACTIONS (2)
  - ENDOMETRIAL CANCER [None]
  - NEOPLASM MALIGNANT [None]
